FAERS Safety Report 19635265 (Version 1)
Quarter: 2021Q3

REPORT INFORMATION
  Report Type: Spontaneous
  Country: FR (occurrence: FR)
  Receive Date: 20210729
  Receipt Date: 20210729
  Transmission Date: 20211014
  Serious: Yes (Other)
  Sender: FDA-Public Use
  Company Number: FR-PFIZER INC-2021895665

PATIENT
  Age: 55 Year
  Sex: Female

DRUGS (1)
  1. PAMIDRONATE DE SODIUM HOSPIRA [Suspect]
     Active Substance: PAMIDRONATE DISODIUM
     Indication: COMPLEX REGIONAL PAIN SYNDROME
     Dosage: 60 MG; 2ND COURSE DURING 4 HOURS
     Route: 041
     Dates: start: 20210702

REACTIONS (2)
  - Thrombophlebitis [Recovering/Resolving]
  - Off label use [Unknown]

NARRATIVE: CASE EVENT DATE: 20210702
